FAERS Safety Report 7373545-2 (Version None)
Quarter: 2011Q1

REPORT INFORMATION
  Report Type: 
  Country: None (occurrence: None)
  Receive Date: 20110325
  Receipt Date: 20081202
  Transmission Date: 20110831
  Serious: No
  Sender: FDA-Public Use
  Company Number: 2008BI032510

PATIENT
  Sex: Female

DRUGS (2)
  1. TYSABRI [Suspect]
     Indication: MULTIPLE SCLEROSIS
     Route: 042
     Dates: start: 20080903, end: 20081216
  2. TYSABRI [Suspect]
     Route: 042
     Dates: start: 20091005, end: 20110103

REACTIONS (19)
  - MIGRAINE [None]
  - DRY MOUTH [None]
  - FEELING ABNORMAL [None]
  - COORDINATION ABNORMAL [None]
  - FATIGUE [None]
  - ASTHENIA [None]
  - WEIGHT INCREASED [None]
  - DEPRESSION [None]
  - INFLUENZA [None]
  - HEADACHE [None]
  - ARTHRALGIA [None]
  - TREMOR [None]
  - BONE PAIN [None]
  - LETHARGY [None]
  - DYSPNOEA [None]
  - FEELING COLD [None]
  - MYALGIA [None]
  - AMNESIA [None]
  - URINARY TRACT INFECTION [None]
